FAERS Safety Report 19451108 (Version 1)
Quarter: 2021Q2

REPORT INFORMATION
  Report Type: Spontaneous
  Country: US (occurrence: US)
  Receive Date: 20210622
  Receipt Date: 20210622
  Transmission Date: 20210717
  Serious: No
  Sender: FDA-Public Use
  Company Number: None

PATIENT
  Age: 79 Year
  Sex: Female
  Weight: 81.65 kg

DRUGS (1)
  1. PACEMAKER [Suspect]
     Active Substance: DEVICE

REACTIONS (4)
  - Contraindicated device used [None]
  - Hypersensitivity [None]
  - Exposure to radiation [None]
  - Complication associated with device [None]

NARRATIVE: CASE EVENT DATE: 20200227
